FAERS Safety Report 9666258 (Version 1)
Quarter: 2013Q4

REPORT INFORMATION
  Report Type: Spontaneous
  Country: US (occurrence: None)
  Receive Date: 20131031
  Receipt Date: 20131031
  Transmission Date: 20140711
  Serious: Yes (Death)
  Sender: FDA-Public Use
  Company Number: 20130092

PATIENT
  Age: 54 Year
  Sex: Female

DRUGS (1)
  1. SUBSYS [Suspect]
     Indication: NEOPLASM MALIGNANT
     Dosage: 100MCG AS NEEDED, SL
     Dates: start: 20130627, end: 201308

REACTIONS (1)
  - Breast cancer metastatic [None]
